FAERS Safety Report 5206959-7 (Version None)
Quarter: 2007Q1

REPORT INFORMATION
  Report Type: 
  Country: None (occurrence: None)
  Receive Date: 20070110
  Receipt Date: 20070103
  Transmission Date: 20070707
  Serious: Yes (Hospitalization)
  Sender: FDA-Public Use
  Company Number: 234184

PATIENT
  Age: 79 Year
  Sex: Female

DRUGS (10)
  1. AVASTIN [Suspect]
     Indication: HEPATIC NEOPLASM MALIGNANT
     Dosage: 800 MG, INTRAVENOUS
     Route: 042
     Dates: start: 20061129
  2. CISPLATIN [Suspect]
     Indication: HEPATIC NEOPLASM MALIGNANT
     Dosage: 100 MG
     Dates: start: 20061206
  3. DOXORUBICIN HCL [Suspect]
     Indication: HEPATIC NEOPLASM MALIGNANT
     Dosage: 50 MG
     Dates: start: 20061206
  4. MITOMYCIN [Suspect]
     Indication: HEPATIC NEOPLASM MALIGNANT
     Dosage: 10 MG
     Dates: start: 20061206
  5. LIPIODOL (IODIZED OIL) [Suspect]
     Indication: HEPATIC NEOPLASM MALIGNANT
  6. LIDOCAINE [Concomitant]
  7. CIPROFLOXACIN [Concomitant]
  8. NEURONTIN [Concomitant]
  9. METHADONE HCL (METHADONE HYDROCHLORIDE) [Concomitant]
  10. TOPROL-XL [Concomitant]

REACTIONS (5)
  - BLOOD CREATININE INCREASED [None]
  - BLOOD POTASSIUM DECREASED [None]
  - BLOOD UREA INCREASED [None]
  - CONFUSIONAL STATE [None]
  - DEHYDRATION [None]
